FAERS Safety Report 11085006 (Version 5)
Quarter: 2016Q4

REPORT INFORMATION
  Report Type: Spontaneous
  Country: US (occurrence: US)
  Receive Date: 20150503
  Receipt Date: 20161027
  Transmission Date: 20170206
  Serious: Yes (Hospitalization, Other)
  Sender: FDA-Public Use
  Company Number: US-JNJFOC-20150403861

PATIENT
  Age: 70 Year
  Sex: Female

DRUGS (19)
  1. LACTOBACILLUS ACIDOPHILUS [Concomitant]
     Active Substance: LACTOBACILLUS ACIDOPHILUS
     Route: 048
  2. PREMARIN [Concomitant]
     Active Substance: ESTROGENS, CONJUGATED
     Route: 048
  3. RESTORIL [Concomitant]
     Active Substance: TEMAZEPAM
     Route: 048
  4. OXAZEPAM. [Concomitant]
     Active Substance: OXAZEPAM
     Route: 048
  5. THIAMINE. [Concomitant]
     Active Substance: THIAMINE
     Route: 048
  6. DIPHENHYDRAMINE. [Concomitant]
     Active Substance: DIPHENHYDRAMINE
     Route: 048
  7. CARVEDILOL. [Concomitant]
     Active Substance: CARVEDILOL
     Route: 048
  8. POTASSIUM CHLORIDE. [Concomitant]
     Active Substance: POTASSIUM CHLORIDE
     Route: 048
  9. FUROSEMIDE. [Concomitant]
     Active Substance: FUROSEMIDE
     Route: 048
  10. SPIRONOLACTONE. [Concomitant]
     Active Substance: SPIRONOLACTONE
     Route: 048
  11. NICOTINE. [Concomitant]
     Active Substance: NICOTINE
  12. PROTONIX [Concomitant]
     Active Substance: PANTOPRAZOLE SODIUM
     Route: 048
  13. VITAMIN C [Concomitant]
     Active Substance: ASCORBIC ACID
     Route: 048
  14. AGGRENOX [Concomitant]
     Active Substance: ASPIRIN\DIPYRIDAMOLE
     Indication: CARDIAC DISORDER
  15. XARELTO [Suspect]
     Active Substance: RIVAROXABAN
     Indication: CARDIAC FAILURE CONGESTIVE
     Route: 048
     Dates: start: 2011, end: 2013
  16. OLMESARTAN [Concomitant]
     Active Substance: OLMESARTAN
     Route: 048
  17. ROCEPHIN [Concomitant]
     Active Substance: CEFTRIAXONE SODIUM
  18. VITAMIN E\VITAMINS [Concomitant]
     Active Substance: .ALPHA.-TOCOPHEROL\VITAMINS
  19. LEVAQUIN [Concomitant]
     Active Substance: LEVOFLOXACIN
     Route: 048

REACTIONS (8)
  - Rectal haemorrhage [Unknown]
  - Hiatus hernia [Unknown]
  - Oesophagitis [Unknown]
  - Respiratory failure [Unknown]
  - Anaemia [Unknown]
  - Vaginal haemorrhage [Unknown]
  - Internal haemorrhage [Unknown]
  - Gastrointestinal haemorrhage [Unknown]

NARRATIVE: CASE EVENT DATE: 201307
